FAERS Safety Report 8595951-0 (Version None)
Quarter: 2012Q3

REPORT INFORMATION
  Report Type: 
  Country: None (occurrence: None)
  Receive Date: 20120815
  Receipt Date: 19950221
  Transmission Date: 20120928
  Serious: Yes (Hospitalization, Other)
  Sender: FDA-Public Use
  Company Number: US-ROCHE-1100994

PATIENT
  Sex: Female

DRUGS (7)
  1. MORPHINE [Concomitant]
     Dosage: 10 MG/ML
  2. HEPARIN [Concomitant]
     Route: 042
  3. PROCHLORPERAZINE [Concomitant]
     Dosage: 5MG/ML
  4. NITROL OINT [Concomitant]
  5. DEXTROSE [Concomitant]
  6. ACTIVASE [Suspect]
     Indication: ACUTE MYOCARDIAL INFARCTION
     Route: 042
  7. ATROPINE SULFATE [Concomitant]
     Dosage: 0.4 MG/ML

REACTIONS (4)
  - CHEST PAIN [None]
  - HYPOTENSION [None]
  - SINUS BRADYCARDIA [None]
  - NAUSEA [None]
